FAERS Safety Report 4621947-7 (Version None)
Quarter: 2005Q1

REPORT INFORMATION
  Report Type: 
  Country: None (occurrence: None)
  Receive Date: 20050329
  Receipt Date: 20050316
  Transmission Date: 20050727
  Serious: Yes (Other)
  Sender: FDA-Public Use
  Company Number: PHEH2005US03298

PATIENT
  Age: 54 Year
  Sex: Female

DRUGS (5)
  1. ELIDEL [Suspect]
     Indication: ECZEMA
     Dosage: UNK, BID
     Route: 061
     Dates: start: 20050209, end: 20050224
  2. PREVIDENT [Concomitant]
  3. TOPAMAX [Concomitant]
  4. EFFEXOR [Concomitant]
  5. ANTIDEPRESSANTS [Concomitant]

REACTIONS (9)
  - APPLICATION SITE EXCORIATION [None]
  - APPLICATION SITE PAIN [None]
  - APPLICATION SITE VESICLES [None]
  - DERMATITIS EXFOLIATIVE [None]
  - EAR PAIN [None]
  - EYE DISCHARGE [None]
  - EYE SWELLING [None]
  - EYELID OEDEMA [None]
  - PERIORBITAL OEDEMA [None]
